FAERS Safety Report 9290409 (Version 1)
Quarter: 2013Q2

REPORT INFORMATION
  Report Type: Spontaneous
  Country: US (occurrence: US)
  Receive Date: 20130515
  Receipt Date: 20130515
  Transmission Date: 20140414
  Serious: No
  Sender: FDA-Public Use
  Company Number: US-PFIZER INC-2013146495

PATIENT
  Sex: Female

DRUGS (2)
  1. LEVOXYL [Suspect]
     Dosage: 100 UG, 1X/DAY
  2. LEVOXYL [Suspect]
     Dosage: 100 UG, 1X/DAY

REACTIONS (2)
  - Tablet physical issue [Unknown]
  - Dysphagia [Unknown]
